FAERS Safety Report 10196932 (Version 1)
Quarter: 2014Q2

REPORT INFORMATION
  Report Type: Spontaneous
  Country: PL (occurrence: PL)
  Receive Date: 20140527
  Receipt Date: 20140527
  Transmission Date: 20141212
  Serious: Yes (Other)
  Sender: FDA-Public Use
  Company Number: PL-CELGENEUS-129-21660-14052270

PATIENT
  Age: 67 Year
  Sex: Female
  Weight: 83 kg

DRUGS (4)
  1. ABRAXANE [Suspect]
     Indication: BREAST CANCER FEMALE
     Route: 041
     Dates: start: 20140307, end: 20140307
  2. ONDANSETRON [Concomitant]
     Indication: BREAST CANCER FEMALE
     Route: 041
     Dates: start: 20140307, end: 20140307
  3. DEXAVEN [Concomitant]
     Indication: BREAST CANCER FEMALE
     Route: 041
     Dates: start: 20140307, end: 20140307
  4. RANITYDYNA [Concomitant]
     Indication: BREAST CANCER FEMALE
     Route: 041
     Dates: start: 20140307, end: 20140307

REACTIONS (3)
  - Throat tightness [Recovered/Resolved]
  - Hypersensitivity [Recovered/Resolved]
  - Dyspnoea [Recovered/Resolved]
